FAERS Safety Report 24079032 (Version 3)
Quarter: 2025Q3

REPORT INFORMATION
  Report Type: Report from Study
  Country: US (occurrence: US)
  Receive Date: 20240711
  Receipt Date: 20250816
  Transmission Date: 20251020
  Serious: No
  Sender: ALEXION PHARMACEUTICALS
  Company Number: US-AstraZeneca-CH-00659239A

PATIENT
  Sex: Male

DRUGS (1)
  1. ULTOMIRIS [Suspect]
     Active Substance: RAVULIZUMAB-CWVZ
     Indication: Myasthenia gravis
     Route: 065

REACTIONS (6)
  - Candida infection [Recovering/Resolving]
  - Weight decreased [Unknown]
  - Gallbladder disorder [Unknown]
  - Feeding disorder [Unknown]
  - Asthenia [Unknown]
  - Gastrointestinal disorder [Not Recovered/Not Resolved]
